FAERS Safety Report 10302287 (Version 1)
Quarter: 2014Q3

REPORT INFORMATION
  Report Type: Spontaneous
  Country: US (occurrence: None)
  Receive Date: 20140709
  Receipt Date: 20140709
  Transmission Date: 20150326
  Serious: Yes (Hospitalization)
  Sender: FDA-Public Use
  Company Number: 2014AP003538

PATIENT
  Age: 8 Year
  Sex: Female
  Weight: 20 kg

DRUGS (1)
  1. FERRIPROX [Suspect]
     Active Substance: DEFERIPRONE
     Indication: THALASSAEMIA
     Route: 048
     Dates: start: 20130502, end: 20140527

REACTIONS (2)
  - Injection site infection [None]
  - Staphylococcal infection [None]
